FAERS Safety Report 7325984-3 (Version None)
Quarter: 2011Q1

REPORT INFORMATION
  Report Type: 
  Country: None (occurrence: None)
  Receive Date: 20110302
  Receipt Date: 20110225
  Transmission Date: 20110831
  Serious: No
  Sender: FDA-Public Use
  Company Number: US-PFIZER INC-2011041973

PATIENT
  Sex: Female
  Weight: 113 kg

DRUGS (2)
  1. ACETAMINOPHEN AND HYDROCODONE BITARTRATE [Concomitant]
     Indication: BACK DISORDER
     Dosage: 10 MG, UNK
  2. LYRICA [Suspect]
     Indication: FIBROMYALGIA
     Dosage: 100 MG, 3X/DAY
     Route: 048
     Dates: start: 20110104, end: 20110224

REACTIONS (5)
  - DIZZINESS [None]
  - TREMOR [None]
  - MALAISE [None]
  - ASTHENIA [None]
  - FEELING ABNORMAL [None]
